FAERS Safety Report 5222313-6 (Version None)
Quarter: 2007Q1

REPORT INFORMATION
  Report Type: 
  Country: None (occurrence: None)
  Receive Date: 20070129
  Receipt Date: 20070116
  Transmission Date: 20070707
  Serious: Yes (Hospitalization, Other)
  Sender: FDA-Public Use
  Company Number: PHEH2006US08530

PATIENT
  Age: 50 Year
  Sex: Female
  Weight: 84.807 kg

DRUGS (8)
  1. GLEEVEC [Suspect]
     Indication: CHRONIC MYELOID LEUKAEMIA
     Dosage: 500 MG, QD
     Route: 048
     Dates: start: 20040303, end: 20060601
  2. GLEEVEC [Suspect]
     Dosage: 400 MG, QD
     Route: 048
     Dates: start: 20030712, end: 20030823
  3. GLEEVEC [Suspect]
     Dosage: 600 MG, QD
     Route: 048
     Dates: start: 20030723, end: 20040303
  4. VITAMIN E [Concomitant]
     Dosage: 100 MG, QD
     Route: 048
  5. VITAMIN CAP [Concomitant]
     Dosage: 1 DF, QD
     Route: 048
  6. ASCORBIC ACID [Concomitant]
     Dosage: 1 DF, QD
     Route: 048
  7. CLARITIN [Concomitant]
     Dosage: UNK, UNK
     Route: 048
     Dates: start: 20060601, end: 20060601
  8. NEUTRA-PHOS [Concomitant]
     Dosage: 1 DF, TID
     Route: 048
     Dates: start: 20060701

REACTIONS (19)
  - APLASTIC ANAEMIA [None]
  - ATRIAL FIBRILLATION [None]
  - BLOOD MAGNESIUM DECREASED [None]
  - BONE MARROW FAILURE [None]
  - CARDIAC FAILURE [None]
  - EPISTAXIS [None]
  - EXPOSURE TO TOXIC AGENT [None]
  - FEBRILE NEUTROPENIA [None]
  - FUNGUS SEROLOGY TEST POSITIVE [None]
  - HEPATIC ENZYME INCREASED [None]
  - HYPOALBUMINAEMIA [None]
  - LIP HAEMORRHAGE [None]
  - LUNG INFILTRATION [None]
  - OEDEMA PERIPHERAL [None]
  - ORAL CANDIDIASIS [None]
  - ORAL HERPES [None]
  - PANCYTOPENIA [None]
  - PROTHROMBIN TIME PROLONGED [None]
  - STAPHYLOCOCCAL SEPSIS [None]
